FAERS Safety Report 6899696-4 (Version None)
Quarter: 2010Q3

REPORT INFORMATION
  Report Type: 
  Country: None (occurrence: None)
  Receive Date: 20100803
  Receipt Date: 20100722
  Transmission Date: 20110219
  Serious: Yes (Other)
  Sender: FDA-Public Use
  Company Number: US-RANBAXY-2010US-36182

PATIENT

DRUGS (9)
  1. VERAPAMIL [Suspect]
     Indication: HYPERTENSION
     Dosage: 240 MG, UNK
     Route: 065
  2. VIAGRA [Suspect]
     Indication: ERECTILE DYSFUNCTION
     Dosage: 25 MG, UNK
     Route: 065
  3. VIAGRA [Suspect]
     Dosage: 50 MG
     Route: 065
  4. VIAGRA [Suspect]
     Dosage: 100 MG
     Route: 065
  5. ACCUPRIL [Suspect]
     Indication: HYPERTENSION
     Dosage: 40 UNK
     Route: 065
  6. ACCUPRIL [Suspect]
     Dosage: 20 MG
     Route: 065
  7. PROZAC [Concomitant]
     Indication: ERECTILE DYSFUNCTION
     Dosage: 50MG
     Route: 065
  8. PROZAC [Concomitant]
     Dosage: 100MG
     Route: 065
  9. SYNTHROID [Concomitant]
     Indication: PRODUCT USED FOR UNKNOWN INDICATION
     Route: 065

REACTIONS (5)
  - ARTHRITIS [None]
  - ERECTILE DYSFUNCTION [None]
  - HEART RATE IRREGULAR [None]
  - HIP ARTHROPLASTY [None]
  - SYNCOPE [None]
